FAERS Safety Report 20304588 (Version 1)
Quarter: 2022Q1

REPORT INFORMATION
  Report Type: Report from Study
  Country: US (occurrence: US)
  Receive Date: 20220106
  Receipt Date: 20220106
  Transmission Date: 20220423
  Serious: Yes (Death)
  Sender: FDA-Public Use
  Company Number: US-BAYER-2022A000019

PATIENT
  Age: 14 Year

DRUGS (4)
  1. ASPIRIN [Interacting]
     Active Substance: ASPIRIN
     Indication: Ventricular assist device insertion
     Dosage: UNK
  2. ASPIRIN [Interacting]
     Active Substance: ASPIRIN
     Indication: Anticoagulant therapy
  3. HEPARIN [Interacting]
     Active Substance: HEPARIN SODIUM
     Indication: Anticoagulant therapy
  4. WARFARIN [Interacting]
     Active Substance: WARFARIN
     Indication: Anticoagulant therapy

REACTIONS (3)
  - Haemorrhage intracranial [Fatal]
  - Labelled drug-drug interaction medication error [Fatal]
  - Off label use [None]
